FAERS Safety Report 13841267 (Version 3)
Quarter: 2025Q3

REPORT INFORMATION
  Report Type: Spontaneous
  Country: CN (occurrence: CN)
  Receive Date: 20170807
  Receipt Date: 20250827
  Transmission Date: 20251021
  Serious: Yes (Life-Threatening, Hospitalization, Other)
  Sender: PFIZER
  Company Number: CN-MLMSERVICE-20170727-0826591-1

PATIENT
  Age: 62 Year
  Sex: Male

DRUGS (3)
  1. PACLITAXEL [Suspect]
     Active Substance: PACLITAXEL
     Indication: Adenocarcinoma gastric
     Dates: start: 20120207, end: 20120301
  2. OXALIPLATIN [Suspect]
     Active Substance: OXALIPLATIN
     Indication: Adenocarcinoma gastric
     Dates: start: 20120207, end: 20120301
  3. XELODA [Suspect]
     Active Substance: CAPECITABINE
     Indication: Adenocarcinoma gastric
     Dosage: 1500 MG, 2X/DAY (1500 MG, UNK (TWICE A DAY DAY 1 TO DAY 14)
     Dates: start: 20120207, end: 20120301

REACTIONS (9)
  - Gastrointestinal haemorrhage [Recovered/Resolved]
  - Arterial rupture [Recovered/Resolved]
  - Aspergillus infection [Recovered/Resolved]
  - Hypotension [Unknown]
  - Fatigue [Unknown]
  - Nausea [Unknown]
  - Vomiting [Unknown]
  - Dizziness [Unknown]
  - Off label use [Unknown]

NARRATIVE: CASE EVENT DATE: 20120101
